FAERS Safety Report 22008105 (Version 2)
Quarter: 2023Q1

REPORT INFORMATION
  Report Type: Spontaneous
  Country: AT (occurrence: AT)
  Receive Date: 20230218
  Receipt Date: 20230318
  Transmission Date: 20230417
  Serious: Yes (Other)
  Sender: FDA-Public Use
  Company Number: AT-AMGEN-AUTSP2023025729

PATIENT
  Age: 84 Year
  Sex: Male

DRUGS (3)
  1. CINACALCET HYDROCHLORIDE [Suspect]
     Active Substance: CINACALCET HYDROCHLORIDE
     Indication: Hyperparathyroidism secondary
     Dosage: 30-60 MILLIGRAM, QD
     Route: 065
     Dates: start: 2017
  2. CINACALCET HYDROCHLORIDE [Suspect]
     Active Substance: CINACALCET HYDROCHLORIDE
     Dosage: 30 MILLIGRAM, QD
     Route: 065
     Dates: start: 202110
  3. CINACALCET HYDROCHLORIDE [Suspect]
     Active Substance: CINACALCET HYDROCHLORIDE
     Dosage: 90 MILLIGRAM, QD
     Route: 065
     Dates: end: 202204

REACTIONS (11)
  - Peripheral ischaemia [Unknown]
  - Vascular graft complication [Unknown]
  - Coronary artery disease [Unknown]
  - Blood parathyroid hormone increased [Recovering/Resolving]
  - Blood pressure increased [Unknown]
  - Blood calcium abnormal [Recovered/Resolved]
  - Hyperphosphataemia [Recovered/Resolved]
  - Treatment noncompliance [Unknown]
  - Peripheral arterial occlusive disease [Unknown]
  - Depression [Unknown]
  - Blood potassium increased [Unknown]
